FAERS Safety Report 7043319-0 (Version None)
Quarter: 2010Q4

REPORT INFORMATION
  Report Type: 
  Country: None (occurrence: None)
  Receive Date: 20101013
  Receipt Date: 20100223
  Transmission Date: 20110411
  Serious: No
  Sender: FDA-Public Use
  Company Number: US-ASTRAZENECA-2010SE01554

PATIENT
  Sex: Male
  Weight: 56.7 kg

DRUGS (1)
  1. SYMBICORT [Suspect]
     Indication: ASTHMA
     Dosage: 80 MCG/4.5 MCG
     Route: 055

REACTIONS (4)
  - DYSGEUSIA [None]
  - DYSPHONIA [None]
  - OROPHARYNGEAL PAIN [None]
  - PAROSMIA [None]
